FAERS Safety Report 16563437 (Version 3)
Quarter: 2019Q3

REPORT INFORMATION
  Report Type: Report from Study
  Country: US (occurrence: US)
  Receive Date: 20190712
  Receipt Date: 20190822
  Transmission Date: 20191004
  Serious: Yes (Life-Threatening, Hospitalization, Other)
  Sender: FDA-Public Use
  Company Number: US-ALEXION PHARMACEUTICALS INC.-A201910381

PATIENT
  Sex: Female

DRUGS (2)
  1. PROCRIT [Suspect]
     Active Substance: ERYTHROPOIETIN
     Indication: PRODUCT USED FOR UNKNOWN INDICATION
     Route: 065
  2. SOLIRIS [Suspect]
     Active Substance: ECULIZUMAB
     Indication: ATYPICAL HAEMOLYTIC URAEMIC SYNDROME
     Route: 065

REACTIONS (16)
  - Gastrointestinal necrosis [Unknown]
  - Leukaemia [Unknown]
  - Platelet transfusion [Unknown]
  - Gait inability [Unknown]
  - Asthenia [Unknown]
  - Bone pain [Unknown]
  - Blood creatinine increased [Unknown]
  - Rehabilitation therapy [Not Recovered/Not Resolved]
  - Ascites [Unknown]
  - Muscular weakness [Unknown]
  - Laboratory test abnormal [Unknown]
  - Intestinal obstruction [Unknown]
  - Renal impairment [Unknown]
  - Abdominal pain [Unknown]
  - Oedema peripheral [Unknown]
  - Dialysis [Unknown]

NARRATIVE: CASE EVENT DATE: 20190629
